FAERS Safety Report 9866453 (Version 1)
Quarter: 2014Q1

REPORT INFORMATION
  Report Type: Spontaneous
  Country: GB (occurrence: GB)
  Receive Date: 20140204
  Receipt Date: 20140204
  Transmission Date: 20141002
  Serious: Yes (Disabling, Other)
  Sender: FDA-Public Use
  Company Number: PHHY2014GB009688

PATIENT
  Age: 83 Year
  Sex: Male
  Weight: 72.12 kg

DRUGS (5)
  1. METRONIDAZOLE [Suspect]
     Indication: TOOTH ABSCESS
     Dosage: 200 MG, UNK
     Route: 048
     Dates: start: 20140106, end: 20140112
  2. CAPTOPRIL [Concomitant]
     Dosage: 50 MG, UNK
  3. AMLODIPINE [Concomitant]
     Dosage: 5 MG, UNK
  4. TAMSULOSIN HYDROCHLORIDE [Concomitant]
     Dosage: 0.4 MG, UNK
  5. SIMVASTATIN [Concomitant]
     Dosage: 20 MG, UNK

REACTIONS (2)
  - Joint swelling [Not Recovered/Not Resolved]
  - Arthralgia [Not Recovered/Not Resolved]
